FAERS Safety Report 21792108 (Version 3)
Quarter: 2023Q1

REPORT INFORMATION
  Report Type: Report from Study
  Country: US (occurrence: US)
  Receive Date: 20221229
  Receipt Date: 20230213
  Transmission Date: 20230417
  Serious: Yes (Other)
  Sender: FDA-Public Use
  Company Number: US-ABBVIE-4206275

PATIENT
  Age: 73 Year
  Sex: Male
  Weight: 63.502 kg

DRUGS (21)
  1. RINVOQ [Suspect]
     Active Substance: UPADACITINIB
     Indication: Rheumatoid arthritis
     Route: 048
  2. RINVOQ [Suspect]
     Active Substance: UPADACITINIB
     Indication: Rheumatoid arthritis
     Route: 048
     Dates: start: 2019
  3. RINVOQ [Suspect]
     Active Substance: UPADACITINIB
     Indication: Rheumatoid arthritis
     Route: 048
  4. FLUOROURACIL [Concomitant]
     Active Substance: FLUOROURACIL
     Indication: Product used for unknown indication
     Dosage: 5%
  5. PANTOPRAZOLE SODIUM [Concomitant]
     Active Substance: PANTOPRAZOLE SODIUM
     Indication: Product used for unknown indication
  6. PANTOPRAZOLE [Concomitant]
     Active Substance: PANTOPRAZOLE
     Indication: Product used for unknown indication
  7. Calcium 600 MG [Concomitant]
     Indication: Product used for unknown indication
     Route: 048
  8. atorvastatin calcium 80 mg [Concomitant]
     Indication: Product used for unknown indication
  9. Nitrostat 0.4 MG [Concomitant]
     Indication: Product used for unknown indication
  10. DULOXETINE HYDROCHLORIDE [Concomitant]
     Active Substance: DULOXETINE HYDROCHLORIDE
     Indication: Product used for unknown indication
     Route: 048
  11. LYRICA [Concomitant]
     Active Substance: PREGABALIN
     Indication: Product used for unknown indication
  12. DENOSUMAB [Concomitant]
     Active Substance: DENOSUMAB
     Indication: Product used for unknown indication
  13. VITAMIN C [Concomitant]
     Active Substance: ASCORBIC ACID
     Indication: Product used for unknown indication
     Route: 048
  14. FLUTICASONE PROPIONATE [Concomitant]
     Active Substance: FLUTICASONE PROPIONATE
     Indication: Product used for unknown indication
     Dosage: HFA
  15. Metoprolol Succinate 12.5 mg [Concomitant]
     Indication: Product used for unknown indication
  16. Sulindac 200 MG [Concomitant]
     Indication: Product used for unknown indication
  17. Vitamin d3 50 MCG [Concomitant]
     Indication: Product used for unknown indication
     Dosage: 2000 UT
  18. Butrans 7.5 MCG/HR [Concomitant]
     Indication: Product used for unknown indication
  19. Tizanidine HCL 2 MG [Concomitant]
     Indication: Product used for unknown indication
  20. ASPIRIN [Concomitant]
     Active Substance: ASPIRIN
     Indication: Product used for unknown indication
  21. BENZOIC ACID [Concomitant]
     Active Substance: BENZOIC ACID
     Indication: Product used for unknown indication

REACTIONS (5)
  - Skin cosmetic procedure [Recovering/Resolving]
  - Spinal compression fracture [Recovering/Resolving]
  - Back pain [Unknown]
  - Arthralgia [Unknown]
  - Depression [Unknown]

NARRATIVE: CASE EVENT DATE: 20221115
